FAERS Safety Report 25339247 (Version 4)
Quarter: 2025Q2

REPORT INFORMATION
  Report Type: Report from Study
  Country: IL (occurrence: IL)
  Receive Date: 20250521
  Receipt Date: 20250618
  Transmission Date: 20250717
  Serious: Yes (Other)
  Sender: ALEXION PHARMACEUTICALS
  Company Number: IL-AstraZeneca-CH-00872464A

PATIENT
  Weight: 65 kg

DRUGS (1)
  1. FASENRA [Suspect]
     Active Substance: BENRALIZUMAB
     Indication: Asthma
     Dosage: 30 MILLIGRAM, Q8W

REACTIONS (13)
  - Rib fracture [Not Recovered/Not Resolved]
  - Hypoacusis [Unknown]
  - Device leakage [Unknown]
  - Pain [Unknown]
  - Tremor [Unknown]
  - Illness [Unknown]
  - Fatigue [Unknown]
  - Pruritus [Unknown]
  - Skin disorder [Unknown]
  - Paraesthesia [Unknown]
  - Accidental exposure to product [Unknown]
  - Psychological trauma [Unknown]
  - Product dose omission issue [Unknown]
